FAERS Safety Report 4293276-5 (Version None)
Quarter: 2004Q1

REPORT INFORMATION
  Report Type: 
  Country: None (occurrence: None)
  Receive Date: 20040209
  Receipt Date: 20030821
  Transmission Date: 20041129
  Serious: No
  Sender: FDA-Public Use
  Company Number: 345202

PATIENT
  Age: 39 Year
  Sex: Female

DRUGS (2)
  1. TORADOL [Suspect]
     Indication: DRUG USE FOR UNKNOWN INDICATION
  2. LOVENOX [Concomitant]

REACTIONS (4)
  - GASTRIC HAEMORRHAGE [None]
  - GASTROINTESTINAL HAEMORRHAGE [None]
  - THROMBOSIS [None]
  - VAGINAL DISORDER [None]
